FAERS Safety Report 16282127 (Version 2)
Quarter: 2019Q2

REPORT INFORMATION
  Report Type: Spontaneous
  Country: FR (occurrence: FR)
  Receive Date: 20190507
  Receipt Date: 20190530
  Transmission Date: 20190711
  Serious: Yes (Hospitalization)
  Sender: FDA-Public Use
  Company Number: FR-SA-2019SA122265

PATIENT
  Age: 64 Year
  Sex: Male

DRUGS (4)
  1. VACCIN RABIQUE PASTEUR POUDRE ET SOLVANT POUR SUSPENSION INJECTABLE [Suspect]
     Active Substance: RABIES VACCINE
     Dosage: 2.5 IU
     Route: 030
     Dates: start: 20190416, end: 20190416
  2. IMOGAM RAGE [Suspect]
     Active Substance: HUMAN RABIES VIRUS IMMUNE GLOBULIN
     Indication: IMMUNISATION
     Dosage: 300 IU, 1X
     Route: 030
     Dates: start: 20190402, end: 20190402
  3. VACCIN RABIQUE PASTEUR POUDRE ET SOLVANT POUR SUSPENSION INJECTABLE [Suspect]
     Active Substance: RABIES VACCINE
     Indication: IMMUNISATION
     Dosage: 2.5 IU
     Route: 030
     Dates: start: 20190402, end: 20190416
  4. VACCIN RABIQUE PASTEUR POUDRE ET SOLVANT POUR SUSPENSION INJECTABLE [Suspect]
     Active Substance: RABIES VACCINE
     Dosage: 2.5 IU
     Route: 030
     Dates: start: 20190405, end: 20190416

REACTIONS (2)
  - Encephalitis [Recovered/Resolved]
  - Inappropriate schedule of product administration [Recovered/Resolved]

NARRATIVE: CASE EVENT DATE: 20190416
